FAERS Safety Report 5284329-3 (Version None)
Quarter: 2007Q2

REPORT INFORMATION
  Report Type: 
  Country: None (occurrence: None)
  Receive Date: 20070403
  Receipt Date: 20070322
  Transmission Date: 20071010
  Serious: Yes (Hospitalization)
  Sender: FDA-Public Use
  Company Number: US-ROCHE-469796

PATIENT
  Age: 56 Year
  Sex: Female

DRUGS (2)
  1. PEGASYS [Suspect]
     Route: 058
     Dates: start: 20060711, end: 20070111
  2. COPEGUS [Suspect]
     Route: 048
     Dates: start: 20060711, end: 20070111

REACTIONS (8)
  - ALOPECIA [None]
  - CHOLELITHIASIS [None]
  - DEPRESSION [None]
  - FATIGUE [None]
  - MUSCULAR WEAKNESS [None]
  - PANCREATITIS [None]
  - RASH PRURITIC [None]
  - THYROID FUNCTION TEST ABNORMAL [None]
